FAERS Safety Report 15493432 (Version 17)
Quarter: 2020Q3

REPORT INFORMATION
  Report Type: Report from Study
  Country: DE (occurrence: DE)
  Receive Date: 20181012
  Receipt Date: 20200824
  Transmission Date: 20201102
  Serious: Yes (Death, Life-Threatening, Hospitalization, Disabling, Other)
  Sender: FDA-Public Use
  Company Number: DE-BRISTOL-MYERS SQUIBB COMPANY-BMS-2018-093229

PATIENT
  Age: 71 Year
  Sex: Male

DRUGS (20)
  1. CIPROFLOXACIN HYDROCHLORIDE MONOHYDRATE [Concomitant]
     Active Substance: CIPROFLOXACIN HYDROCHLORIDE
     Indication: PRODUCT USED FOR UNKNOWN INDICATION
     Dosage: UNK
     Route: 065
  2. AMPICILLIN SODIUM. [Concomitant]
     Active Substance: AMPICILLIN SODIUM
     Indication: PRODUCT USED FOR UNKNOWN INDICATION
     Dosage: 3000 MILLIGRAM
     Route: 042
     Dates: start: 20180520
  3. NIVOLUMAB [Suspect]
     Active Substance: NIVOLUMAB
     Indication: MALIGNANT MELANOMA
     Dosage: 103 MILLIGRAM
     Route: 065
     Dates: start: 20180413
  4. IPILIMUMAB [Suspect]
     Active Substance: IPILIMUMAB
     Dosage: 1 MILLIGRAM/KILOGRAM
     Route: 065
     Dates: start: 20190103, end: 20190204
  5. HEPARIN [Suspect]
     Active Substance: HEPARIN SODIUM
     Indication: PRODUCT USED FOR UNKNOWN INDICATION
     Dosage: UNK
     Route: 065
  6. POTASSIUM CITRATE MONOHYDRATE [Concomitant]
     Indication: PRODUCT USED FOR UNKNOWN INDICATION
     Dosage: 1560 MILLIGRAM
     Route: 065
  7. TRIMOXAZOL [Concomitant]
     Active Substance: SULFAMETHOXAZOLE\TRIMETHOPRIM
     Indication: PRODUCT USED FOR UNKNOWN INDICATION
     Dosage: 160 MILLIGRAM
     Route: 065
  8. TAZOBACTAM [Concomitant]
     Active Substance: TAZOBACTAM
     Indication: PRODUCT USED FOR UNKNOWN INDICATION
     Dosage: UNK
     Route: 065
  9. METAMIZOLE SODIUM [Concomitant]
     Active Substance: METAMIZOLE SODIUM
     Indication: PRODUCT USED FOR UNKNOWN INDICATION
     Dosage: UNK
     Route: 065
  10. NIVOLUMAB [Suspect]
     Active Substance: NIVOLUMAB
     Dosage: 3 MILLIGRAM/KILOGRAM
     Route: 042
     Dates: start: 20190103, end: 20190204
  11. SODIUM [Concomitant]
     Active Substance: SODIUM
     Indication: PRODUCT USED FOR UNKNOWN INDICATION
     Dosage: UNK
     Route: 065
  12. IPILIMUMAB [Suspect]
     Active Substance: IPILIMUMAB
     Indication: MALIGNANT MELANOMA
     Dosage: 309 MILLIGRAM
     Route: 065
     Dates: start: 20180413, end: 20180504
  13. PIPERACILLIN SODIUM [Concomitant]
     Active Substance: PIPERACILLIN SODIUM
     Indication: PRODUCT USED FOR UNKNOWN INDICATION
     Dosage: UNK
     Route: 065
  14. COTRIMOXAZOLE [Concomitant]
     Active Substance: SULFAMETHOXAZOLE\TRIMETHOPRIM
     Indication: PRODUCT USED FOR UNKNOWN INDICATION
     Dosage: UNK
     Route: 065
  15. MEROPENEM TRIHYDRATE [Concomitant]
     Active Substance: MEROPENEM
     Indication: PRODUCT USED FOR UNKNOWN INDICATION
     Dosage: UNK
     Route: 065
  16. NIVOLUMAB [Suspect]
     Active Substance: NIVOLUMAB
     Dosage: 103 MILLIGRAM
     Route: 065
     Dates: start: 20180504
  17. METHYLPREDNISOLONE. [Concomitant]
     Active Substance: METHYLPREDNISOLONE
     Indication: PRODUCT USED FOR UNKNOWN INDICATION
     Dosage: UNK
     Route: 065
  18. INSULIN LISPRO [Concomitant]
     Active Substance: INSULIN LISPRO
     Indication: PRODUCT USED FOR UNKNOWN INDICATION
     Dosage: 300 UNIT, UNK
     Route: 058
     Dates: start: 20180525, end: 20180830
  19. COLECALCIFEROL [Concomitant]
     Active Substance: CHOLECALCIFEROL
     Indication: PRODUCT USED FOR UNKNOWN INDICATION
     Dosage: 20 MILLIGRAM
     Route: 048
  20. PREDNISOLON [PREDNISOLONE] [Concomitant]
     Active Substance: PREDNISOLONE
     Indication: PRODUCT USED FOR UNKNOWN INDICATION
     Dosage: UNK
     Route: 065

REACTIONS (18)
  - Klebsiella infection [Not Recovered/Not Resolved]
  - Chest pain [Unknown]
  - Hypertensive crisis [Unknown]
  - Colitis [Recovered/Resolved]
  - Device related infection [Not Recovered/Not Resolved]
  - Malignant neoplasm progression [Fatal]
  - Heparin-induced thrombocytopenia [Recovered/Resolved]
  - Metastases to meninges [Unknown]
  - Hyperglycaemia [Recovered/Resolved]
  - Urosepsis [Recovered/Resolved]
  - Blood pressure increased [Unknown]
  - Adrenomegaly [Unknown]
  - Acute kidney injury [Recovered/Resolved]
  - Dyspnoea [Unknown]
  - Tachycardia [Unknown]
  - Meningitis [Not Recovered/Not Resolved]
  - Retinal detachment [Not Recovered/Not Resolved]
  - Pulmonary oedema [Unknown]

NARRATIVE: CASE EVENT DATE: 20180419
